FAERS Safety Report 25140588 (Version 1)
Quarter: 2025Q1

REPORT INFORMATION
  Report Type: Report from Study
  Country: US (occurrence: US)
  Receive Date: 20250331
  Receipt Date: 20250331
  Transmission Date: 20250409
  Serious: Yes (Hospitalization)
  Sender: BLUEBIRD BIO
  Company Number: US-BLUEBIRD BIO-US-BBB-25-00007

PATIENT

DRUGS (1)
  1. SKYSONA [Suspect]
     Active Substance: ELIVALDOGENE AUTOTEMCEL
     Route: 042
     Dates: start: 20230908, end: 20230908

REACTIONS (1)
  - Pyrexia [Recovered/Resolved]

NARRATIVE: CASE EVENT DATE: 20231120
